FAERS Safety Report 4832260-7 (Version None)
Quarter: 2005Q4

REPORT INFORMATION
  Report Type: 
  Country: None (occurrence: None)
  Receive Date: 20051118
  Receipt Date: 20051109
  Transmission Date: 20060501
  Serious: Yes (Hospitalization)
  Sender: FDA-Public Use
  Company Number: IT-ABBOTT-05P-083-0316882-00

PATIENT
  Sex: Female

DRUGS (4)
  1. DEPAKENE [Suspect]
     Indication: PSYCHOTIC DISORDER
     Route: 048
     Dates: start: 20050401, end: 20050930
  2. TRIZIVIR [Interacting]
     Indication: HIV INFECTION
     Route: 048
     Dates: start: 19951001, end: 20050930
  3. TRIZIVIR [Interacting]
     Dates: start: 20051001
  4. ARIPIPRAZOLE [Interacting]
     Indication: PSYCHOTIC DISORDER
     Route: 048
     Dates: start: 20050817, end: 20050930

REACTIONS (4)
  - ANAEMIA [None]
  - BONE MARROW FAILURE [None]
  - DRUG INTERACTION [None]
  - DRUG LEVEL INCREASED [None]
